FAERS Safety Report 10489362 (Version 1)
Quarter: 2014Q4

REPORT INFORMATION
  Report Type: Report from Study
  Country: CA (occurrence: CA)
  Receive Date: 20141002
  Receipt Date: 20141002
  Transmission Date: 20150528
  Serious: Yes (Other)
  Sender: FDA-Public Use
  Company Number: CA-JNJFOC-20140924442

PATIENT
  Sex: Male
  Weight: 74 kg

DRUGS (1)
  1. REMICADE [Suspect]
     Active Substance: INFLIXIMAB
     Indication: COLITIS ULCERATIVE
     Route: 042
     Dates: start: 20130916

REACTIONS (5)
  - Arthralgia [Unknown]
  - Therapeutic response decreased [Unknown]
  - Fistula [Not Recovered/Not Resolved]
  - Fatigue [Unknown]
  - Asthenia [Unknown]
